FAERS Safety Report 18663473 (Version 3)
Quarter: 2021Q1

REPORT INFORMATION
  Report Type: Spontaneous
  Country: CN (occurrence: CN)
  Receive Date: 20201224
  Receipt Date: 20210112
  Transmission Date: 20210419
  Serious: Yes (Other)
  Sender: FDA-Public Use
  Company Number: CN-SA-2020SA338207

PATIENT
  Age: 55 Year
  Sex: Female
  Weight: 55 kg

DRUGS (1)
  1. LANTUS [Suspect]
     Active Substance: INSULIN GLARGINE
     Indication: DIABETES MELLITUS
     Dosage: UNK
     Route: 065
     Dates: start: 202010

REACTIONS (10)
  - Abdominal discomfort [Not Recovered/Not Resolved]
  - Lipase increased [Unknown]
  - Poor quality product administered [Not Recovered/Not Resolved]
  - Retinal haemorrhage [Recovering/Resolving]
  - Frequent bowel movements [Not Recovered/Not Resolved]
  - Bacteriuria [Unknown]
  - Platelet count increased [Unknown]
  - Liquid product physical issue [Not Recovered/Not Resolved]
  - Product storage error [Unknown]
  - Multiple use of single-use product [Unknown]

NARRATIVE: CASE EVENT DATE: 2020
